FAERS Safety Report 17829505 (Version 1)
Quarter: 2020Q2

REPORT INFORMATION
  Report Type: Spontaneous
  Country: US (occurrence: US)
  Receive Date: 20200527
  Receipt Date: 20200527
  Transmission Date: 20200714
  Serious: Yes (Hospitalization, Other)
  Sender: FDA-Public Use
  Company Number: US-HQ SPECIALTY-US-2020INT000058

PATIENT
  Sex: Female

DRUGS (3)
  1. RADIOTHERAPY [Suspect]
     Active Substance: RADIATION THERAPY
     Indication: CERVIX CARCINOMA
     Dosage: 45.0-47.6 GY, 25-28 FRACTIONS TO THE PELVIS + PARA-AORTIC NODES WITH NODAL BOOST TO 53.2-59.4 GY
     Route: 050
  2. CISPLATIN. [Suspect]
     Active Substance: CISPLATIN
     Indication: CERVIX CARCINOMA
     Dosage: 40 MG/M2, (70 MG MAXIMUM), WEEKLY
     Route: 042
  3. GEMCITABINE. [Suspect]
     Active Substance: GEMCITABINE
     Indication: CERVIX CARCINOMA
     Dosage: 50 MG/M2, WEEKLY
     Route: 042

REACTIONS (5)
  - Systemic inflammatory response syndrome [Unknown]
  - Rash [Unknown]
  - Abdominal pain upper [Unknown]
  - Drug hypersensitivity [Unknown]
  - Pyrexia [Unknown]
